FAERS Safety Report 13344788 (Version 1)
Quarter: 2017Q1

REPORT INFORMATION
  Report Type: Report from Study
  Country: None (occurrence: US)
  Receive Date: 20170317
  Receipt Date: 20170317
  Transmission Date: 20170428
  Serious: Yes (Other)
  Sender: FDA-Public Use
  Company Number: US-ABBVIE-17K-163-1902263-00

PATIENT
  Sex: Female

DRUGS (2)
  1. HUMIRA [Suspect]
     Active Substance: ADALIMUMAB
     Route: 058
  2. HUMIRA [Suspect]
     Active Substance: ADALIMUMAB
     Indication: COLITIS ULCERATIVE
     Route: 058
     Dates: start: 200912

REACTIONS (6)
  - Wound complication [Unknown]
  - Acne cystic [Unknown]
  - Basal cell carcinoma [Unknown]
  - Postural orthostatic tachycardia syndrome [Unknown]
  - Drug ineffective [Unknown]
  - Colitis ulcerative [Unknown]
